FAERS Safety Report 11192801 (Version 1)
Quarter: 2015Q2

REPORT INFORMATION
  Report Type: Spontaneous
  Country: US (occurrence: US)
  Receive Date: 20150616
  Receipt Date: 20150616
  Transmission Date: 20150821
  Serious: No
  Sender: FDA-Public Use
  Company Number: US-PFIZER INC-2015198075

PATIENT
  Sex: Female

DRUGS (1)
  1. GABAPENTIN. [Suspect]
     Active Substance: GABAPENTIN
     Indication: NEURALGIA
     Dosage: 100 MG, UNK
     Dates: start: 20150609

REACTIONS (5)
  - Feeling abnormal [Unknown]
  - Dizziness [Unknown]
  - Chest discomfort [Unknown]
  - Malaise [Unknown]
  - Dyspnoea [Unknown]
